FAERS Safety Report 22105403 (Version 1)
Quarter: 2023Q1

REPORT INFORMATION
  Report Type: Spontaneous
  Country: GB (occurrence: GB)
  Receive Date: 20230317
  Receipt Date: 20230317
  Transmission Date: 20230418
  Serious: Yes (Other)
  Sender: FDA-Public Use
  Company Number: GB-AMGEN-GBRSP2023043621

PATIENT

DRUGS (1)
  1. ADALIMUMAB [Suspect]
     Active Substance: ADALIMUMAB
     Indication: Dermatomyositis
     Dosage: UNK
     Route: 065

REACTIONS (14)
  - Pulmonary hypertension [Unknown]
  - Lipodystrophy acquired [Unknown]
  - Drug ineffective for unapproved indication [Unknown]
  - Body mass index decreased [Unknown]
  - Lung disorder [Unknown]
  - Developmental delay [Unknown]
  - Calcinosis [Unknown]
  - Gastrointestinal disorder [Unknown]
  - Educational problem [Unknown]
  - Loss of personal independence in daily activities [Unknown]
  - Arthritis [Unknown]
  - Muscular weakness [Unknown]
  - Rash [Unknown]
  - Off label use [Unknown]
